FAERS Safety Report 4319720-2 (Version None)
Quarter: 2004Q1

REPORT INFORMATION
  Report Type: 
  Country: None (occurrence: None)
  Receive Date: 20040317
  Receipt Date: 20040309
  Transmission Date: 20041129
  Serious: Yes (Death)
  Sender: FDA-Public Use
  Company Number: US068847

PATIENT

DRUGS (1)
  1. EPOGEN [Suspect]
     Indication: ANAEMIA

REACTIONS (1)
  - DEATH [None]
